FAERS Safety Report 7219212-7 (Version None)
Quarter: 2011Q1

REPORT INFORMATION
  Report Type: 
  Country: None (occurrence: None)
  Receive Date: 20110111
  Receipt Date: 20101231
  Transmission Date: 20110831
  Serious: Yes (Other)
  Sender: FDA-Public Use
  Company Number: US-PFIZER INC-2011000016

PATIENT
  Sex: Female

DRUGS (1)
  1. LYRICA [Suspect]
     Dosage: UNK
     Dates: start: 20101230

REACTIONS (4)
  - SOMNOLENCE [None]
  - VISION BLURRED [None]
  - BALANCE DISORDER [None]
  - COORDINATION ABNORMAL [None]
